FAERS Safety Report 8169002-6 (Version None)
Quarter: 2012Q1

REPORT INFORMATION
  Report Type: 
  Country: None (occurrence: None)
  Receive Date: 20120227
  Receipt Date: 20120216
  Transmission Date: 20120608
  Serious: Yes (Hospitalization, Other)
  Sender: FDA-Public Use
  Company Number: PHHY2012US002614

PATIENT
  Sex: Female

DRUGS (11)
  1. DILTIAZEM HCL [Concomitant]
  2. COMBIVENT [Concomitant]
  3. PLAQUENIL [Concomitant]
  4. HYDROCHLOROTHIAZIDE [Concomitant]
  5. CUBICIN [Suspect]
     Indication: CELLULITIS
     Dosage: UNK
     Dates: start: 20111001
  6. ADVAIR DISKUS 100/50 [Concomitant]
  7. VANCOMYCIN [Suspect]
     Dosage: 1 G, UNK
     Route: 042
  8. PRINIVIL [Concomitant]
  9. PRILOSEC [Concomitant]
  10. ZANTAC [Concomitant]
  11. ALBUTEROL [Concomitant]

REACTIONS (4)
  - ASTHENIA [None]
  - DIZZINESS [None]
  - NEUROLEPTIC MALIGNANT SYNDROME [None]
  - BLOOD CREATINE PHOSPHOKINASE INCREASED [None]
